FAERS Safety Report 16898412 (Version 1)
Quarter: 2019Q4

REPORT INFORMATION
  Report Type: Spontaneous
  Country: IT (occurrence: IT)
  Receive Date: 20191009
  Receipt Date: 20191009
  Transmission Date: 20200122
  Serious: Yes (Hospitalization)
  Sender: FDA-Public Use
  Company Number: IT-ROCHE-2429821

PATIENT
  Age: 84 Year
  Sex: Male
  Weight: 68 kg

DRUGS (3)
  1. VALIUM [Suspect]
     Active Substance: DIAZEPAM
     Indication: DELIRIUM
     Dosage: VALIUM 5 MG/ML ORAL DROPS, SOLUTION?LAST DOSE PRIOR TO EVENT ONSET: 02/SEP/2019
     Route: 048
     Dates: start: 20190825
  2. TALOFEN [Suspect]
     Active Substance: PROMAZINE HYDROCHLORIDE
     Indication: DELIRIUM
     Dosage: ORAL DROPS, SOLUTION?LAST DOSE PRIOR TO EVENT ONSET: 01/SEP/2019
     Route: 048
     Dates: start: 20190825
  3. SERENASE [HALOPERIDOL] [Suspect]
     Active Substance: HALOPERIDOL
     Indication: DELIRIUM
     Dosage: ORAL DROPS, SOLUTION?LAST DOSE PRIOR TO EVENT ONSET: 05/SEP/2019
     Route: 048
     Dates: start: 20190825

REACTIONS (1)
  - Sopor [Recovered/Resolved with Sequelae]

NARRATIVE: CASE EVENT DATE: 20190905
